FAERS Safety Report 5275939-8 (Version None)
Quarter: 2007Q1

REPORT INFORMATION
  Report Type: 
  Country: None (occurrence: None)
  Receive Date: 20061219
  Receipt Date: 20061010
  Transmission Date: 20070707
  Serious: Yes (Hospitalization, Other)
  Sender: FDA-Public Use
  Company Number: US-JNJFOC-20061000926

PATIENT
  Age: 20 Year
  Sex: Female
  Weight: 77.2 kg

DRUGS (2)
  1. ORTHO EVRA [Suspect]
     Indication: CONTRACEPTION
     Dosage: TRANSDERMAL
     Route: 062
     Dates: start: 20030101, end: 20030920
  2. EXCEDRIN (MIGRAINE) [Concomitant]

REACTIONS (2)
  - CEREBRAL INFARCTION [None]
  - DERMATITIS CONTACT [None]
